FAERS Safety Report 10077870 (Version 1)
Quarter: 2014Q2

REPORT INFORMATION
  Report Type: Spontaneous
  Country: US (occurrence: US)
  Receive Date: 20140414
  Receipt Date: 20140414
  Transmission Date: 20141212
  Serious: Yes (Other)
  Sender: FDA-Public Use
  Company Number: US-ABBVIE-14P-163-1223771-00

PATIENT
  Sex: Female
  Weight: 78.09 kg

DRUGS (1)
  1. SYNTHROID [Suspect]
     Indication: HYPOTHYROIDISM

REACTIONS (7)
  - Cataract [Unknown]
  - Bursitis [Not Recovered/Not Resolved]
  - Exostosis [Not Recovered/Not Resolved]
  - Pain [Not Recovered/Not Resolved]
  - Dry eye [Not Recovered/Not Resolved]
  - Asthma [Not Recovered/Not Resolved]
  - Blood cholesterol increased [Unknown]
